FAERS Safety Report 23109924 (Version 1)
Quarter: 2023Q4

REPORT INFORMATION
  Report Type: Spontaneous
  Country: GB (occurrence: GB)
  Receive Date: 20231026
  Receipt Date: 20231026
  Transmission Date: 20240109
  Serious: Yes (Other)
  Sender: FDA-Public Use
  Company Number: None

PATIENT
  Age: 39 Year
  Sex: Female
  Weight: 57 kg

DRUGS (3)
  1. FRAGMIN [Suspect]
     Active Substance: DALTEPARIN SODIUM
     Indication: Knee operation
     Dosage: INJECTION IN EVENING
     Dates: start: 20230917
  2. IBUPROFEN [Concomitant]
     Active Substance: IBUPROFEN
     Indication: Lower limb fracture
     Dosage: UNK
     Dates: start: 20230916, end: 20231006
  3. ACETAMINOPHEN [Concomitant]
     Active Substance: ACETAMINOPHEN
     Indication: Lower limb fracture
     Dosage: UNK
     Dates: start: 20230916, end: 20231012

REACTIONS (4)
  - Injection site pain [Recovered/Resolved]
  - Back pain [Recovered/Resolved]
  - Arthralgia [Recovered/Resolved]
  - Off label use [Unknown]

NARRATIVE: CASE EVENT DATE: 20230917
